FAERS Safety Report 9541892 (Version 2)
Quarter: 2013Q4

REPORT INFORMATION
  Report Type: Spontaneous
  Country: CA (occurrence: CA)
  Receive Date: 20130923
  Receipt Date: 20131028
  Transmission Date: 20140711
  Serious: Yes (Hospitalization, Other)
  Sender: FDA-Public Use
  Company Number: PHHY2013CA104871

PATIENT
  Age: 74 Year
  Sex: Female

DRUGS (15)
  1. ACLASTA [Suspect]
     Indication: OSTEOPOROSIS
     Dosage: 5 MG/100ML
     Route: 042
  2. ACLASTA [Suspect]
     Dosage: 5 MG/100ML
     Route: 042
  3. ACLASTA [Suspect]
     Dosage: 5 MG/100ML
     Route: 042
     Dates: start: 20130829
  4. COUMADINE [Concomitant]
     Dosage: UNK UKN, UNK
     Dates: start: 20121106
  5. LASIX [Concomitant]
     Dosage: UNK UKN, UNK
     Dates: start: 20121106
  6. SEROQUEL [Concomitant]
     Dosage: UNK UKN, UNK
     Dates: start: 20121106
  7. CENTRUM [Concomitant]
     Dosage: UNK UKN, UNK
     Dates: start: 20121106
  8. SPIRIVA [Concomitant]
     Dosage: UNK UKN, UNK
     Dates: start: 20121119
  9. CALCIUM [Concomitant]
     Dosage: UNK UKN, UNK
     Dates: start: 20121204
  10. ASAPHEN [Concomitant]
     Dosage: UNK UKN, UNK
     Dates: start: 20121204
  11. PANTOPRAZOLE [Concomitant]
     Dosage: UNK UKN, UNK
     Dates: start: 20121204
  12. EURO-D [Concomitant]
     Dosage: UNK UKN, UNK
     Dates: start: 20121204
  13. OXEZE TURBUHALER [Concomitant]
     Dosage: UNK UKN, UNK
     Dates: start: 20130221
  14. SYSTANE [Concomitant]
     Dosage: UNK UKN, UNK
     Dates: start: 20130221
  15. TEARS NATURAL [Concomitant]
     Dosage: UNK UKN, UNK
     Dates: start: 20130221

REACTIONS (7)
  - Tremor [Recovered/Resolved with Sequelae]
  - Chills [Recovered/Resolved with Sequelae]
  - Hypotension [Recovered/Resolved with Sequelae]
  - Vomiting [Recovered/Resolved with Sequelae]
  - Pyrexia [Recovered/Resolved with Sequelae]
  - Epistaxis [Recovered/Resolved with Sequelae]
  - Headache [Recovered/Resolved with Sequelae]
